FAERS Safety Report 5628655-4 (Version None)
Quarter: 2008Q1

REPORT INFORMATION
  Report Type: 
  Country: None (occurrence: None)
  Receive Date: 20080215
  Receipt Date: 20080208
  Transmission Date: 20080703
  Serious: Yes (Other)
  Sender: FDA-Public Use
  Company Number: US-GENENTECH-255957

PATIENT
  Age: 75 Year
  Sex: Male

DRUGS (4)
  1. LUCENTIS [Suspect]
     Indication: MACULAR DEGENERATION
  2. LUCENTIS [Suspect]
     Indication: DETACHMENT OF RETINAL PIGMENT EPITHELIUM
     Dosage: 0.5 MG, UNK
  3. AVASTIN [Suspect]
     Indication: MACULAR DEGENERATION
  4. AVASTIN [Suspect]
     Indication: DETACHMENT OF RETINAL PIGMENT EPITHELIUM
     Dosage: 2.5 MG, UNK

REACTIONS (2)
  - DETACHMENT OF RETINAL PIGMENT EPITHELIUM [None]
  - EYE HAEMORRHAGE [None]
